FAERS Safety Report 7141195-9 (Version None)
Quarter: 2010Q4

REPORT INFORMATION
  Report Type: 
  Country: None (occurrence: None)
  Receive Date: 20101203
  Receipt Date: 20101203
  Transmission Date: 20110411
  Serious: Yes (Other)
  Sender: FDA-Public Use
  Company Number: None

PATIENT
  Age: 54 Year
  Sex: Female
  Weight: 88.4514 kg

DRUGS (1)
  1. ACETAMINOPHEN W/ CODEINE [Suspect]
     Indication: TOOTH EXTRACTION
     Dosage: 1 PILL TOOK ONLY ONCE PO
     Route: 048

REACTIONS (2)
  - DIZZINESS [None]
  - PALPITATIONS [None]
